FAERS Safety Report 8517187-1 (Version None)
Quarter: 2012Q3

REPORT INFORMATION
  Report Type: 
  Country: None (occurrence: None)
  Receive Date: 20120705
  Receipt Date: 20120622
  Transmission Date: 20120928
  Serious: Yes (Other)
  Sender: FDA-Public Use
  Company Number: 1336789

PATIENT
  Age: 73 Year
  Sex: Male

DRUGS (2)
  1. OXALIPLATIN [Suspect]
     Indication: PRODUCT USED FOR UNKNOWN INDICATION
     Dosage: 170 MG (1 IN 1 DEPENDING ON CYCLE) INTRAVENOUS DRIP
     Route: 041
     Dates: start: 20120606, end: 20120606
  2. GEMZAR [Concomitant]

REACTIONS (7)
  - DYSPNOEA [None]
  - DYSPHONIA [None]
  - FEELING ABNORMAL [None]
  - NO THERAPEUTIC RESPONSE [None]
  - LIP SWELLING [None]
  - PRURITUS [None]
  - ERYTHEMA [None]
